FAERS Safety Report 10482680 (Version 2)
Quarter: 2014Q4

REPORT INFORMATION
  Report Type: Spontaneous
  Country: JP (occurrence: JP)
  Receive Date: 20140929
  Receipt Date: 20141030
  Transmission Date: 20150528
  Serious: Yes (Hospitalization, Other)
  Sender: FDA-Public Use
  Company Number: PHHY2014JP125924

PATIENT
  Sex: Female

DRUGS (3)
  1. EXELON PATCH [Suspect]
     Active Substance: RIVASTIGMINE
     Indication: DEMENTIA ALZHEIMER^S TYPE
     Route: 062
  2. EXELON PATCH [Suspect]
     Active Substance: RIVASTIGMINE
     Dosage: 18 MG, QD
     Route: 062
     Dates: start: 20130720, end: 20130814
  3. UBRETID [Suspect]
     Active Substance: DISTIGMINE BROMIDE
     Indication: PRODUCT USED FOR UNKNOWN INDICATION
     Dosage: 5 MG, QD
     Route: 048
     Dates: start: 20130806, end: 20130806

REACTIONS (5)
  - Pneumonia [Recovered/Resolved]
  - Diarrhoea [Unknown]
  - Cholinergic syndrome [Recovered/Resolved]
  - Aggression [Unknown]
  - Behavioural and psychiatric symptoms of dementia [Unknown]

NARRATIVE: CASE EVENT DATE: 20130701
